FAERS Safety Report 4491152-6 (Version None)
Quarter: 2004Q3

REPORT INFORMATION
  Report Type: 
  Country: None (occurrence: None)
  Receive Date: 20040927
  Receipt Date: 20040730
  Transmission Date: 20050211
  Serious: No
  Sender: FDA-Public Use
  Company Number: USA040874191

PATIENT
  Age: 12 Year
  Sex: Male
  Weight: 72 kg

DRUGS (1)
  1. STRATTERA [Suspect]
     Indication: ATTENTION DEFICIT/HYPERACTIVITY DISORDER
     Dosage: 80 MG IN THE EVENING
     Dates: start: 20040709

REACTIONS (3)
  - DISTURBANCE IN ATTENTION [None]
  - EPISTAXIS [None]
  - SOMNOLENCE [None]
